FAERS Safety Report 4999586-8 (Version None)
Quarter: 2006Q2

REPORT INFORMATION
  Report Type: 
  Country: None (occurrence: None)
  Receive Date: 20060511
  Receipt Date: 20051114
  Transmission Date: 20061013
  Serious: Yes (Hospitalization)
  Sender: FDA-Public Use
  Company Number: US-MERCK-0511USA02233

PATIENT
  Age: 53 Year
  Sex: Female
  Weight: 55 kg

DRUGS (15)
  1. VIOXX [Suspect]
     Indication: ANALGESIC EFFECT
     Route: 048
     Dates: start: 20010119, end: 20040701
  2. VIOXX [Suspect]
     Route: 048
     Dates: start: 20010119, end: 20040701
  3. VIOXX [Suspect]
     Indication: OSTEOARTHRITIS
     Route: 048
     Dates: start: 20010119, end: 20040701
  4. VIOXX [Suspect]
     Route: 048
     Dates: start: 20010119, end: 20040701
  5. ASPIRIN [Concomitant]
     Route: 065
  6. ALLEGRA [Concomitant]
     Indication: SEASONAL ALLERGY
     Route: 065
  7. CLONAZEPAM [Concomitant]
     Indication: RESTLESS LEGS SYNDROME
     Route: 065
  8. COUMADIN [Concomitant]
     Route: 065
  9. FRAGMIN [Concomitant]
     Route: 065
  10. MAXALT [Concomitant]
     Indication: MIGRAINE
     Route: 048
  11. OXYCODONE [Concomitant]
     Indication: PAIN
     Route: 065
  12. VALIUM [Concomitant]
     Indication: RESTLESS LEGS SYNDROME
     Route: 065
  13. VICODIN [Concomitant]
     Indication: PAIN
     Route: 065
  14. IMITREX [Concomitant]
     Route: 065
  15. ADVIL [Concomitant]
     Indication: PAIN
     Route: 065
     Dates: end: 20010101

REACTIONS (10)
  - ADVERSE EVENT [None]
  - DEEP VEIN THROMBOSIS [None]
  - FALL [None]
  - FIBULA FRACTURE [None]
  - HYPOXIA [None]
  - MIGRAINE [None]
  - OSTEOPOROSIS [None]
  - PULMONARY EMBOLISM [None]
  - RESTLESS LEGS SYNDROME [None]
  - TIBIA FRACTURE [None]
